FAERS Safety Report 6332158-1 (Version None)
Quarter: 2009Q3

REPORT INFORMATION
  Report Type: 
  Country: None (occurrence: None)
  Receive Date: 20090828
  Receipt Date: 20090824
  Transmission Date: 20100115
  Serious: No
  Sender: FDA-Public Use
  Company Number: US-B.I. PHARMACEUTICALS,INC./RIDGEFIELD-2009-BP-10034BP

PATIENT
  Age: 72 Year
  Sex: Female

DRUGS (1)
  1. ZANTAC 75 [Suspect]
     Indication: ABDOMINAL DISTENSION
     Dosage: 75 MG
     Route: 048
     Dates: start: 20090822, end: 20090822

REACTIONS (2)
  - ABDOMINAL DISCOMFORT [None]
  - FATIGUE [None]
